FAERS Safety Report 5546336-2 (Version None)
Quarter: 2007Q4

REPORT INFORMATION
  Report Type: 
  Country: None (occurrence: None)
  Receive Date: 20071206
  Receipt Date: 20071206
  Transmission Date: 20080405
  Serious: Yes (Life-Threatening, Hospitalization, Disabling, Other)
  Sender: FDA-Public Use
  Company Number: None

PATIENT
  Age: 49 Year
  Sex: Male
  Weight: 83.9154 kg

DRUGS (1)
  1. NARCAN [Suspect]
     Indication: PO2 DECREASED
     Dates: start: 20071130, end: 20071130

REACTIONS (18)
  - BLOOD POTASSIUM INCREASED [None]
  - BLOOD PRESSURE DECREASED [None]
  - CONVERSION DISORDER [None]
  - CONVULSION [None]
  - CRYING [None]
  - DIARRHOEA [None]
  - DIVERTICULITIS [None]
  - DRUG DEPENDENCE [None]
  - FEELING HOT [None]
  - FOAMING AT MOUTH [None]
  - GASTROINTESTINAL DISORDER [None]
  - HALLUCINATION [None]
  - MUSCLE ATROPHY [None]
  - MUSCLE RIGIDITY [None]
  - PAIN [None]
  - RENAL FAILURE [None]
  - SCREAMING [None]
  - SPEECH DISORDER [None]
